FAERS Safety Report 18057604 (Version 1)
Quarter: 2020Q3

REPORT INFORMATION
  Report Type: Report from Study
  Country: US (occurrence: US)
  Receive Date: 20200722
  Receipt Date: 20200722
  Transmission Date: 20201103
  Serious: Yes (Other)
  Sender: FDA-Public Use
  Company Number: US-BAXTER-2020BAX015004

PATIENT
  Age: 24 Year
  Sex: Male

DRUGS (12)
  1. ETOPOSIDE. [Suspect]
     Active Substance: ETOPOSIDE
     Indication: IMMUNOBLASTIC LYMPHOMA
     Dosage: PROMACE X 3
     Route: 065
  2. DOXIL [Suspect]
     Active Substance: DOXORUBICIN HYDROCHLORIDE
     Indication: IMMUNOBLASTIC LYMPHOMA
     Dosage: PROMACE X 3
     Route: 065
  3. METHOTREXATE. [Suspect]
     Active Substance: METHOTREXATE
     Indication: IMMUNOBLASTIC LYMPHOMA
     Dosage: PROMACE X 3
     Route: 065
  4. VANCOMYCIN [Concomitant]
     Active Substance: VANCOMYCIN
     Indication: GASTROINTESTINAL DISORDER THERAPY
     Dosage: NON?ABSORBABLE ANTIBIOTICS
     Route: 048
  5. CYCLOPHOSPHAMIDE FOR INJECTION, USP [Suspect]
     Active Substance: CYCLOPHOSPHAMIDE
     Indication: IMMUNOBLASTIC LYMPHOMA
     Dosage: PROMACEX 3
     Route: 065
  6. BLEOMYCIN [Suspect]
     Active Substance: BLEOMYCIN SULFATE
     Indication: IMMUNOBLASTIC LYMPHOMA
     Dosage: CYTABOM X 3
     Route: 065
  7. VINCRISTINE [Suspect]
     Active Substance: VINCRISTINE
     Indication: IMMUNOBLASTIC LYMPHOMA
     Dosage: CYTABOM X 3
     Route: 065
  8. PREDNISONE. [Suspect]
     Active Substance: PREDNISONE
     Indication: IMMUNOBLASTIC LYMPHOMA
     Dosage: PROMACE X 3
     Route: 065
  9. CYTARABINE. [Suspect]
     Active Substance: CYTARABINE
     Indication: IMMUNOBLASTIC LYMPHOMA
     Dosage: CYTABOM X 3
     Route: 065
  10. METHOTREXATE. [Suspect]
     Active Substance: METHOTREXATE
     Dosage: CYTABOM X 3
     Route: 065
  11. NEOMYCIN. [Concomitant]
     Active Substance: NEOMYCIN
     Indication: GASTROINTESTINAL DISORDER THERAPY
     Dosage: NON?ABSORBABLE ANTIBIOTICS
     Route: 065
  12. TRIMETHOPRIM?SULFAMETHOXAZOLE [Concomitant]
     Active Substance: SULFAMETHOXAZOLE\TRIMETHOPRIM
     Indication: PRODUCT USED FOR UNKNOWN INDICATION
     Dosage: ADMINISTERED FROM DAY 13 TO DAY 3
     Route: 065

REACTIONS (2)
  - Febrile neutropenia [Recovered/Resolved]
  - Mucosal inflammation [Unknown]
